FAERS Safety Report 11929065 (Version 1)
Quarter: 2016Q1

REPORT INFORMATION
  Report Type: Spontaneous
  Country: US (occurrence: US)
  Receive Date: 20160120
  Receipt Date: 20160120
  Transmission Date: 20160526
  Serious: No
  Sender: FDA-Public Use
  Company Number: US-ASTRAZENECA-2016SE02762

PATIENT
  Age: 76 Year
  Sex: Female
  Weight: 63.5 kg

DRUGS (2)
  1. CRESTOR [Suspect]
     Active Substance: ROSUVASTATIN CALCIUM
     Indication: BLOOD CHOLESTEROL ABNORMAL
     Route: 048
     Dates: start: 20151111, end: 20160103
  2. VITAMIN D [Concomitant]
     Active Substance: CHOLECALCIFEROL
     Indication: SUPPLEMENTATION THERAPY

REACTIONS (4)
  - Gait disturbance [Unknown]
  - Sleep disorder due to a general medical condition [Unknown]
  - Dry mouth [Unknown]
  - Myalgia [Unknown]

NARRATIVE: CASE EVENT DATE: 2015
